FAERS Safety Report 4876366-5 (Version None)
Quarter: 2006Q1

REPORT INFORMATION
  Report Type: 
  Country: None (occurrence: None)
  Receive Date: 20060106
  Receipt Date: 20051223
  Transmission Date: 20060701
  Serious: Yes (Other)
  Sender: FDA-Public Use
  Company Number: GBWYE267028DEC05

PATIENT
  Sex: Female

DRUGS (1)
  1. EFFEXOR [Suspect]
     Dosage: 210MG; SEE IMAGE
     Route: 048

REACTIONS (8)
  - ARTHRALGIA [None]
  - BACK PAIN [None]
  - BURNING SENSATION [None]
  - HEADACHE [None]
  - MYALGIA [None]
  - PARAESTHESIA [None]
  - TENDON DISORDER [None]
  - TOOTHACHE [None]
